FAERS Safety Report 7633223-9 (Version None)
Quarter: 2011Q3

REPORT INFORMATION
  Report Type: 
  Country: None (occurrence: None)
  Receive Date: 20110725
  Receipt Date: 20110715
  Transmission Date: 20111222
  Serious: Yes (Death)
  Sender: FDA-Public Use
  Company Number: US-SANOFI-AVENTIS-2011SA046572

PATIENT
  Age: 70 Year
  Sex: Female
  Weight: 97 kg

DRUGS (1)
  1. DRONEDARONE HCL [Suspect]
     Indication: ATRIAL FIBRILLATION
     Route: 048
     Dates: start: 20110621, end: 20110707

REACTIONS (2)
  - CARDIAC FAILURE [None]
  - AORTIC ANEURYSM RUPTURE [None]
